FAERS Safety Report 4462885-2 (Version None)
Quarter: 2004Q3

REPORT INFORMATION
  Report Type: 
  Country: None (occurrence: None)
  Receive Date: 20040927
  Receipt Date: 20040917
  Transmission Date: 20050211
  Serious: Yes (Other)
  Sender: FDA-Public Use
  Company Number: 2004-09-1114

PATIENT
  Age: 25 Year
  Sex: Female

DRUGS (1)
  1. CLARINEX [Suspect]
     Indication: RHINITIS ALLERGIC
     Dosage: 5 MG DAILY ORAL
     Route: 048

REACTIONS (2)
  - PARAESTHESIA [None]
  - VISUAL FIELD DEFECT [None]
